FAERS Safety Report 21463788 (Version 2)
Quarter: 2023Q4

REPORT INFORMATION
  Report Type: Spontaneous
  Country: US (occurrence: US)
  Receive Date: 20221017
  Receipt Date: 20231017
  Transmission Date: 20240109
  Serious: No
  Sender: FDA-Public Use
  Company Number: US-APOTEX-2022AP013805

PATIENT
  Sex: Male

DRUGS (1)
  1. OFLOXACIN OTIC [Suspect]
     Active Substance: OFLOXACIN
     Indication: Ear infection bacterial
     Dosage: 10 GTT DROPS, BID
     Route: 001
     Dates: start: 202209

REACTIONS (4)
  - Ear discomfort [Unknown]
  - Product packaging issue [Unknown]
  - Wrong technique in product usage process [Unknown]
  - Product use issue [Unknown]

NARRATIVE: CASE EVENT DATE: 20220901
